FAERS Safety Report 19706901 (Version 1)
Quarter: 2021Q3

REPORT INFORMATION
  Report Type: Spontaneous
  Country: US (occurrence: US)
  Receive Date: 20210816
  Receipt Date: 20210816
  Transmission Date: 20211014
  Serious: No
  Sender: FDA-Public Use
  Company Number: None

PATIENT
  Age: 71 Year
  Sex: Male

DRUGS (2)
  1. IBUPROFEN (IBUPROFEN 400MG TAB) [Suspect]
     Active Substance: IBUPROFEN
     Dosage: ?          OTHER FREQUENCY:PRN;?
     Route: 048
     Dates: start: 20200106, end: 20210731
  2. OMEPRAZOLE (OMEPRAZOLE 20MG CAP, EC) [Suspect]
     Active Substance: OMEPRAZOLE
     Route: 048
     Dates: start: 20200507, end: 20210731

REACTIONS (1)
  - Tubulointerstitial nephritis [None]

NARRATIVE: CASE EVENT DATE: 20210731
